FAERS Safety Report 8884653 (Version 1)
Quarter: 2012Q4

REPORT INFORMATION
  Report Type: 
  Country: JP (occurrence: JP)
  Receive Date: 20121102
  Receipt Date: 20121102
  Transmission Date: 20130627
  Serious: Yes (Other)
  Sender: FDA-Public Use
  Company Number: JP-SANOFI-AVENTIS-2012SA078037

PATIENT
  Age: 78 Year
  Sex: Female

DRUGS (2)
  1. DOCETAXEL [Suspect]
     Indication: GINGIVAL CANCER
     Dosage: 5th day
     Route: 065
  2. CEFEPIME HYDROCHLORIDE [Suspect]
     Indication: PYREXIA
     Route: 065

REACTIONS (4)
  - Encephalopathy [Recovering/Resolving]
  - Altered state of consciousness [Recovering/Resolving]
  - Slow speech [Recovering/Resolving]
  - Pyrexia [Unknown]
